FAERS Safety Report 9779163 (Version 1)
Quarter: 2013Q4

REPORT INFORMATION
  Report Type: Spontaneous
  Country: US (occurrence: US)
  Receive Date: 20131223
  Receipt Date: 20131223
  Transmission Date: 20140711
  Serious: No
  Sender: FDA-Public Use
  Company Number: US-ENDO PHARMACEUTICALS INC.-OPCR20130369

PATIENT
  Sex: Female
  Weight: 67.65 kg

DRUGS (1)
  1. OPANA ER 10MG [Suspect]
     Indication: PAIN
     Route: 048

REACTIONS (4)
  - Alopecia [Not Recovered/Not Resolved]
  - Eye swelling [Not Recovered/Not Resolved]
  - Joint swelling [Not Recovered/Not Resolved]
  - Drug effect decreased [Not Recovered/Not Resolved]
